FAERS Safety Report 14787259 (Version 3)
Quarter: 2018Q2

REPORT INFORMATION
  Report Type: Report from Study
  Country: None (occurrence: US)
  Receive Date: 20180421
  Receipt Date: 20180521
  Transmission Date: 20180711
  Serious: Yes (Hospitalization, Other)
  Sender: FDA-Public Use
  Company Number: US-ABBVIE-18K-163-2330917-00

PATIENT
  Age: 64 Year
  Sex: Male
  Weight: 92.16 kg

DRUGS (1)
  1. HUMIRA [Suspect]
     Active Substance: ADALIMUMAB
     Indication: RHEUMATOID ARTHRITIS
     Route: 058
     Dates: start: 2006, end: 20180414

REACTIONS (10)
  - Limb traumatic amputation [Recovering/Resolving]
  - Pain in extremity [Recovering/Resolving]
  - Oedema [Unknown]
  - Rheumatoid factor increased [Recovering/Resolving]
  - Feeling of body temperature change [Recovered/Resolved]
  - Paranasal sinus hypersecretion [Recovering/Resolving]
  - Sinusitis [Not Recovered/Not Resolved]
  - Pain in extremity [Recovering/Resolving]
  - Sinus congestion [Recovering/Resolving]
  - Cough [Recovering/Resolving]

NARRATIVE: CASE EVENT DATE: 2006
